FAERS Safety Report 6262339-7 (Version None)
Quarter: 2009Q3

REPORT INFORMATION
  Report Type: 
  Country: None (occurrence: None)
  Receive Date: 20090709
  Receipt Date: 20090630
  Transmission Date: 20100115
  Serious: Yes (Other)
  Sender: FDA-Public Use
  Company Number: PHHY2009FR27240

PATIENT
  Age: 46 Year
  Sex: Female

DRUGS (4)
  1. SANDOSTATIN [Suspect]
     Dosage: 25 MG/H FOR 3 DAYS
     Route: 042
  2. SANDOSTATIN [Suspect]
     Dosage: 25 MG/H FOR 3 DAYS
     Route: 042
  3. SANDOSTATIN LAR [Concomitant]
     Dosage: 30 MG EVERY 14 DAYS
     Route: 030
     Dates: start: 19981101
  4. SANDOSTATIN LAR [Concomitant]
     Dosage: 30 MG EVERY 14 DAYS
     Route: 030

REACTIONS (2)
  - DYSPNOEA [None]
  - PULMONARY ARTERIAL HYPERTENSION [None]
